FAERS Safety Report 9769797 (Version 1)
Quarter: 2013Q4

REPORT INFORMATION
  Report Type: Spontaneous
  Country: US (occurrence: US)
  Receive Date: 20131218
  Receipt Date: 20131218
  Transmission Date: 20140711
  Serious: No
  Sender: FDA-Public Use
  Company Number: US-VERTEX PHARMACEUTICALS INC-AE-2011-000775

PATIENT
  Age: 51 Year
  Sex: Female
  Weight: 54.55 kg

DRUGS (7)
  1. INCIVEK [Suspect]
     Indication: HEPATITIS C
     Route: 048
     Dates: start: 20110803
  2. PEGINTERFERON [Concomitant]
     Indication: HEPATITIS C
     Dates: start: 20110803
  3. RIBAVIRIN [Concomitant]
     Indication: HEPATITIS C
     Route: 048
     Dates: start: 20110803
  4. ATENOLOL [Concomitant]
     Indication: BLOOD PRESSURE
     Route: 048
  5. TYLENOL [Concomitant]
     Indication: PAIN
  6. TYLENOL [Concomitant]
     Indication: DISCOMFORT
  7. HCTZ [Concomitant]
     Indication: BLOOD PRESSURE
     Route: 048

REACTIONS (4)
  - Fatigue [Not Recovered/Not Resolved]
  - Nausea [Not Recovered/Not Resolved]
  - Anorectal discomfort [Not Recovered/Not Resolved]
  - Diarrhoea [Not Recovered/Not Resolved]
